FAERS Safety Report 24293049 (Version 1)
Quarter: 2024Q3

REPORT INFORMATION
  Report Type: Spontaneous
  Country: US (occurrence: None)
  Receive Date: 20240906
  Receipt Date: 20240906
  Transmission Date: 20241017
  Serious: No
  Sender: DOMPE FARMACEUTICI
  Company Number: US-FARMAPROD-202308-202311-3420

PATIENT
  Sex: Female

DRUGS (7)
  1. OXERVATE [Suspect]
     Active Substance: CENEGERMIN-BKBJ
     Indication: Neurotrophic keratopathy
     Route: 047
     Dates: start: 20230726, end: 20230925
  2. OXERVATE [Suspect]
     Active Substance: CENEGERMIN-BKBJ
     Route: 047
     Dates: start: 20231102
  3. OXERVATE [Suspect]
     Active Substance: CENEGERMIN-BKBJ
  4. TURMERIC PILL [Concomitant]
  5. LORATADINE [Concomitant]
     Active Substance: LORATADINE
  6. ATENOLOL [Concomitant]
     Active Substance: ATENOLOL
  7. PANTOPRAZOLE SODIUM [Concomitant]
     Active Substance: PANTOPRAZOLE SODIUM

REACTIONS (2)
  - Underdose [Unknown]
  - Intentional product misuse [Unknown]
